FAERS Safety Report 5574291-8 (Version None)
Quarter: 2007Q4

REPORT INFORMATION
  Report Type: 
  Country: None (occurrence: None)
  Receive Date: 20071226
  Receipt Date: 20071226
  Transmission Date: 20080405
  Serious: Yes (Congenital Anomaly)
  Sender: FDA-Public Use
  Company Number: None

PATIENT
  Age: 16 Week
  Sex: Male

DRUGS (3)
  1. REMICADE [Suspect]
     Dosage: 100MG/KG Q 6 WEEKS IV
     Route: 042
     Dates: end: 20071019
  2. ASACOL [Suspect]
  3. PREDNISONE [Suspect]

REACTIONS (6)
  - ANAL ATRESIA [None]
  - CONGENITAL THYMUS ABSENCE [None]
  - DRUG EXPOSURE DURING PREGNANCY [None]
  - FOETAL DISORDER [None]
  - INTRA-UTERINE DEATH [None]
  - SEPSIS [None]
